FAERS Safety Report 6208983-4 (Version None)
Quarter: 2009Q2

REPORT INFORMATION
  Report Type: 
  Country: None (occurrence: None)
  Receive Date: 20090529
  Receipt Date: 20090520
  Transmission Date: 20091009
  Serious: Yes (Hospitalization, Other)
  Sender: FDA-Public Use
  Company Number: PHHO2009JP05977

PATIENT
  Sex: Female

DRUGS (15)
  1. RAD 666 RAD+TAB+PTR [Suspect]
     Indication: RENAL TRANSPLANT
     Dosage: 0.75 MG/DAY
     Route: 048
     Dates: start: 20090115, end: 20090115
  2. RAD 666 RAD+TAB+PTR [Suspect]
     Dosage: 1.5 MG/DAY
     Route: 048
     Dates: start: 20090116, end: 20090120
  3. RAD 666 RAD+TAB+PTR [Suspect]
     Dosage: 3 MG/DAY
     Route: 048
     Dates: start: 20090121, end: 20090217
  4. RAD 666 RAD+TAB+PTR [Suspect]
     Dosage: 2 MG/DAY
     Route: 048
     Dates: start: 20090218, end: 20090509
  5. RAD 666 RAD+TAB+PTR [Suspect]
     Dosage: 2MG/DAY
     Route: 048
     Dates: start: 20090511
  6. NEORAL [Suspect]
     Indication: RENAL TRANSPLANT
     Dosage: 125 MG DAILY
     Route: 048
     Dates: start: 20090118, end: 20090509
  7. NEORAL [Suspect]
     Dosage: 125 MG DAILY
     Route: 048
     Dates: start: 20090511
  8. MEDROL [Suspect]
     Dosage: UNK
     Route: 048
     Dates: start: 20090123
  9. MEDROL [Suspect]
     Dosage: 4 MG DAILY
     Route: 048
     Dates: start: 20090212, end: 20090509
  10. MEDROL [Suspect]
     Dosage: 4 MG DAILY
     Route: 048
     Dates: start: 20090511
  11. SANDIMMUNE [Concomitant]
     Dosage: UNK
     Route: 042
     Dates: start: 20090510
  12. SOLU-MEDROL [Concomitant]
  13. SIMULECT [Concomitant]
  14. ASPIRIN [Concomitant]
  15. CALSLOT [Concomitant]

REACTIONS (5)
  - ANAEMIA [None]
  - DIARRHOEA [None]
  - ENTERITIS INFECTIOUS [None]
  - PYREXIA [None]
  - VOMITING [None]
